FAERS Safety Report 20642034 (Version 1)
Quarter: 2022Q1

REPORT INFORMATION
  Report Type: Spontaneous
  Country: US (occurrence: US)
  Receive Date: 20220328
  Receipt Date: 20220328
  Transmission Date: 20220423
  Serious: No
  Sender: FDA-Public Use
  Company Number: ALC2021US003149

PATIENT
  Sex: Male

DRUGS (2)
  1. PATADAY ONCE DAILY RELIEF [Suspect]
     Active Substance: OLOPATADINE HYDROCHLORIDE
     Indication: Eye pruritus
     Dosage: UNK, QD
     Route: 065
  2. PATADAY ONCE DAILY RELIEF [Suspect]
     Active Substance: OLOPATADINE HYDROCHLORIDE
     Dosage: UNK (ONCE DAILY RELIEF (ES))
     Route: 065

REACTIONS (3)
  - Drug ineffective [Unknown]
  - Liquid product physical issue [Unknown]
  - Eye discharge [Recovered/Resolved]
